FAERS Safety Report 25057160 (Version 1)
Quarter: 2025Q1

REPORT INFORMATION
  Report Type: Spontaneous
  Country: US (occurrence: None)
  Receive Date: 20250307
  Receipt Date: 20250307
  Transmission Date: 20250408
  Serious: Yes (Disabling)
  Sender: FDA-CTU
  Company Number: None

PATIENT

DRUGS (1)
  1. PROLIA [Suspect]
     Active Substance: DENOSUMAB

REACTIONS (7)
  - Alopecia [None]
  - Balance disorder [None]
  - Rash pruritic [None]
  - Back pain [None]
  - Nausea [None]
  - Retching [None]
  - Epigastric discomfort [None]

NARRATIVE: CASE EVENT DATE: 20200817
